FAERS Safety Report 7386831-7 (Version None)
Quarter: 2011Q1

REPORT INFORMATION
  Report Type: 
  Country: None (occurrence: None)
  Receive Date: 20110331
  Receipt Date: 20110318
  Transmission Date: 20110831
  Serious: Yes (Hospitalization)
  Sender: FDA-Public Use
  Company Number: PHHY2011IT25569

PATIENT
  Sex: Female

DRUGS (6)
  1. PEGINTERFERON ALFA-2B [Suspect]
     Indication: HEPATITIS C
     Dosage: 80 ?G/WEEK
     Dates: start: 20090101
  2. MYCOPHENOLATE MOFETIL [Concomitant]
     Dosage: UNK
  3. PEGINTERFERON ALFA-2B [Suspect]
     Dosage: 50 ?G/WEEK
  4. CYCLOSPORINE [Concomitant]
     Dosage: UNK
  5. RIBAVIRIN [Suspect]
     Indication: HEPATITIS C
     Dosage: 800 MG/DAY
     Dates: start: 20090101
  6. PREDNISONE [Concomitant]
     Dosage: UNK

REACTIONS (5)
  - MENORRHAGIA [None]
  - HAEMOLYSIS [None]
  - ANAEMIA [None]
  - THROMBOCYTOPENIA [None]
  - DRUG LEVEL INCREASED [None]
